FAERS Safety Report 5938567-4 (Version None)
Quarter: 2008Q4

REPORT INFORMATION
  Report Type: 
  Country: None (occurrence: None)
  Receive Date: 20081103
  Receipt Date: 20081024
  Transmission Date: 20090506
  Serious: Yes (Other)
  Sender: FDA-Public Use
  Company Number: PHEH2008US08537

PATIENT
  Sex: Female
  Weight: 62.585 kg

DRUGS (1)
  1. RECLAST [Suspect]
     Indication: OSTEOPOROSIS POSTMENOPAUSAL
     Dosage: 5 MG, YEARLY
     Route: 042
     Dates: start: 20080201

REACTIONS (3)
  - DENTAL IMPLANTATION [None]
  - JAW OPERATION [None]
  - OSTEONECROSIS [None]
